APPROVED DRUG PRODUCT: LIFITEGRAST
Active Ingredient: LIFITEGRAST
Strength: 5%
Dosage Form/Route: SOLUTION/DROPS;OPHTHALMIC
Application: A215063 | Product #001
Applicant: EUGIA PHARMA SPECIALITIES LTD
Approved: Nov 7, 2023 | RLD: No | RS: No | Type: DISCN